FAERS Safety Report 5524588-2 (Version None)
Quarter: 2007Q4

REPORT INFORMATION
  Report Type: 
  Country: None (occurrence: None)
  Receive Date: 20071123
  Receipt Date: 20071114
  Transmission Date: 20080405
  Serious: Yes (Hospitalization, Other)
  Sender: FDA-Public Use
  Company Number: US-JNJFOC-20071107023

PATIENT
  Age: 43 Year
  Sex: Female

DRUGS (4)
  1. TRAMADOL HCL [Suspect]
     Indication: MIGRAINE
     Route: 065
  2. SUMATRIPTAN SUCCINATE [Interacting]
     Indication: MIGRAINE
     Route: 065
  3. FLUOXETINE [Interacting]
     Indication: MAJOR DEPRESSION
     Route: 065
  4. MIRTAZAPINE [Interacting]
     Indication: MAJOR DEPRESSION
     Route: 065

REACTIONS (4)
  - DRUG INTERACTION [None]
  - MANIA [None]
  - OVERDOSE [None]
  - SEROTONIN SYNDROME [None]
